FAERS Safety Report 8240561-8 (Version None)
Quarter: 2012Q1

REPORT INFORMATION
  Report Type: 
  Country: None (occurrence: None)
  Receive Date: 20120328
  Receipt Date: 20120313
  Transmission Date: 20120608
  Serious: Yes (Congenital Anomaly)
  Sender: FDA-Public Use
  Company Number: SA-ROCHE-1052331

PATIENT

DRUGS (2)
  1. HERCEPTIN [Suspect]
     Indication: BREAST CANCER
     Dosage: LOADING DOSE
     Route: 042
     Dates: start: 20100519
  2. HERCEPTIN [Suspect]
     Dates: end: 20100929

REACTIONS (5)
  - INTESTINAL PROLAPSE [None]
  - CERVICAL VERTEBRAL FRACTURE [None]
  - FOETAL MALFORMATION [None]
  - ABDOMINAL WALL DISORDER [None]
  - MATERNAL EXPOSURE TIMING UNSPECIFIED [None]
